FAERS Safety Report 5906662-1 (Version None)
Quarter: 2008Q3

REPORT INFORMATION
  Report Type: 
  Country: None (occurrence: None)
  Receive Date: 20080930
  Receipt Date: 20080909
  Transmission Date: 20090109
  Serious: Yes (Disabling)
  Sender: FDA-Public Use
  Company Number: 2008S1016397

PATIENT
  Age: 76 Year
  Sex: Female

DRUGS (2)
  1. AMIODARONE HCL [Suspect]
     Indication: ATRIAL FIBRILLATION
     Dosage: 200 MG; DAILY
  2. WARFARIN SODIUM [Concomitant]

REACTIONS (10)
  - CEREBELLAR SYNDROME [None]
  - COGNITIVE DISORDER [None]
  - DYSARTHRIA [None]
  - GAIT DISTURBANCE [None]
  - GENERAL PHYSICAL HEALTH DETERIORATION [None]
  - HEAD TITUBATION [None]
  - IATROGENIC INJURY [None]
  - NERVOUS SYSTEM DISORDER [None]
  - NYSTAGMUS [None]
  - TREMOR [None]
